FAERS Safety Report 11879269 (Version 1)
Quarter: 2015Q4

REPORT INFORMATION
  Report Type: Spontaneous
  Country: CH (occurrence: CH)
  Receive Date: 20151230
  Receipt Date: 20151230
  Transmission Date: 20160305
  Serious: Yes (Other)
  Sender: FDA-Public Use
  Company Number: CH-TEVA-621559ISR

PATIENT
  Age: 81 Year
  Sex: Female

DRUGS (11)
  1. TRAMADOL. [Concomitant]
     Active Substance: TRAMADOL
     Route: 048
     Dates: start: 20151120
  2. XGEVA [Concomitant]
     Active Substance: DENOSUMAB
     Indication: LUNG CANCER METASTATIC
     Dosage: 4 MILLIGRAM DAILY; SHORT TERM, LAST DOSE RECEIVED ON 20-NOV
     Route: 058
  3. TORASEMID [Concomitant]
     Active Substance: TORSEMIDE
     Indication: OEDEMA
     Dosage: 20 MILLIGRAM DAILY; LONG TERM
     Route: 048
  4. COLCHICINE. [Concomitant]
     Active Substance: COLCHICINE
     Indication: GOUT
     Dosage: 1 MILLIGRAM DAILY; LONG TERM, 2-3 TIMES A DAY
     Route: 048
     Dates: start: 20151124, end: 20151129
  5. TRAMADOL. [Concomitant]
     Active Substance: TRAMADOL
     Indication: PAIN
     Dosage: 75 MILLIGRAM DAILY; UNSPECIFIED STRENGTH, UNSPECIFIED FORM OF ADMINISTRATION, LONG TERM
     Route: 048
     Dates: start: 20151119, end: 20151120
  6. IRFEN [Suspect]
     Active Substance: IBUPROFEN
     Indication: CHEST PAIN
     Dosage: 400 MILLIGRAM DAILY; UNSPECIFIED STRENGTH
     Route: 048
     Dates: start: 20151201, end: 20151201
  7. CLEXANE [Suspect]
     Active Substance: ENOXAPARIN SODIUM
     Indication: VENOUS THROMBOSIS
     Dosage: 80 MILLIGRAM DAILY;
     Route: 058
     Dates: start: 20151201, end: 20151214
  8. ZOLPIDEM [Concomitant]
     Active Substance: ZOLPIDEM\ZOLPIDEM TARTRATE
     Indication: INSOMNIA
     Dosage: 10 MILLIGRAM DAILY; LONG TERM
     Route: 048
  9. NEXIUM [Concomitant]
     Active Substance: ESOMEPRAZOLE MAGNESIUM
     Indication: GASTROOESOPHAGEAL REFLUX DISEASE
     Dosage: 40 MILLIGRAM DAILY; LONG TERM
     Route: 048
  10. ZYLORIC [Suspect]
     Active Substance: ALLOPURINOL
     Indication: GOUT
     Dosage: 100 MILLIGRAM DAILY; UNSPECIFIED STRENGTH, UNSPECIFIED FORM OF ADMINISTRATION
     Route: 048
     Dates: start: 2012, end: 20151207
  11. DAFALGAN [Concomitant]
     Active Substance: ACETAMINOPHEN
     Indication: PAIN
     Dosage: 3 GRAM DAILY; LONG TERM
     Route: 048

REACTIONS (1)
  - Eczema [Recovering/Resolving]

NARRATIVE: CASE EVENT DATE: 20151206
